FAERS Safety Report 14958309 (Version 3)
Quarter: 2018Q3

REPORT INFORMATION
  Report Type: Report from Study
  Country: None (occurrence: JP)
  Receive Date: 20180531
  Receipt Date: 20180705
  Transmission Date: 20181010
  Serious: No
  Sender: FDA-Public Use
  Company Number: JP-ABBVIE-18P-087-2373045-00

PATIENT
  Sex: Male

DRUGS (1)
  1. LEUPRORELIN ACETATE [Suspect]
     Active Substance: LEUPROLIDE ACETATE
     Indication: PRODUCT USED FOR UNKNOWN INDICATION
     Dosage: 22.5 MG, Q6MONTHS
     Route: 058

REACTIONS (2)
  - Injection site necrosis [Unknown]
  - Injection site induration [Unknown]
